FAERS Safety Report 9276233 (Version 1)
Quarter: 2012Q4

REPORT INFORMATION
  Report Type: Spontaneous
  Country: JP (occurrence: None)
  Receive Date: 20121109
  Receipt Date: 20121109
  Transmission Date: 20130627
  Serious: Yes (Life-Threatening)
  Sender: FDA-Public Use
  Company Number: 2012S1000056

PATIENT
  Age: 68 Year
  Sex: Male

DRUGS (3)
  1. CUBICIN (DAPTOMYCIN) [Suspect]
     Indication: DRUG USE FOR UNKNOWN INDICATION
     Dates: start: 20111229, end: 20120104
  2. MAXIPIME [Concomitant]
  3. ZYVOX [Concomitant]

REACTIONS (1)
  - Pneumonia [None]
